FAERS Safety Report 8627831 (Version 2)
Quarter: 2012Q4

REPORT INFORMATION
  Report Type: 
  Country: CO (occurrence: CO)
  Receive Date: 20120621
  Receipt Date: 20120907
  Transmission Date: 20130627
  Serious: Yes (Hospitalization, Other)
  Sender: FDA-Public Use
  Company Number: CO-PFIZER INC-2012148765

PATIENT
  Age: 13 Year
  Sex: Female

DRUGS (3)
  1. ALDACTONE [Suspect]
     Indication: BREAST DISORDER FEMALE
     Dosage: 100 mg, 1x/day
     Route: 048
     Dates: start: 201202
  2. BISACODYL [Concomitant]
     Indication: INTESTINAL OBSTRUCTION
     Dosage: 1 pill
     Dates: start: 201205
  3. PEG 3350 AND ELECTROLYTES FOR ORAL SOLUTION [Concomitant]
     Indication: INTESTINAL OBSTRUCTION
     Dosage: 1 small cup
     Dates: start: 201205

REACTIONS (3)
  - Headache [Not Recovered/Not Resolved]
  - Intestinal obstruction [Unknown]
  - Off label use [Unknown]
